FAERS Safety Report 19885016 (Version 1)
Quarter: 2021Q3

REPORT INFORMATION
  Report Type: Spontaneous
  Country: US (occurrence: US)
  Receive Date: 20210927
  Receipt Date: 20210927
  Transmission Date: 20211014
  Serious: Yes (Life-Threatening)
  Sender: FDA-Public Use
  Company Number: None

PATIENT
  Age: 63 Year
  Sex: Male

DRUGS (1)
  1. DEFINITY [Suspect]
     Active Substance: PERFLUTREN
     Route: 042

REACTIONS (5)
  - Dizziness [None]
  - Back pain [None]
  - Unresponsive to stimuli [None]
  - Hyperventilation [None]
  - Rash [None]

NARRATIVE: CASE EVENT DATE: 20210924
